FAERS Safety Report 25495146 (Version 1)
Quarter: 2025Q2

REPORT INFORMATION
  Report Type: Spontaneous
  Country: DE (occurrence: DE)
  Receive Date: 20250630
  Receipt Date: 20250630
  Transmission Date: 20250716
  Serious: Yes (Other)
  Sender: AUROBINDO
  Company Number: DE-ASTELLAS-2025-AER-031075

PATIENT
  Sex: Male

DRUGS (2)
  1. FLUCONAZOLE [Interacting]
     Active Substance: FLUCONAZOLE
     Indication: Fungal oesophagitis
     Route: 065
  2. PROGRAF [Interacting]
     Active Substance: TACROLIMUS
     Indication: Colitis ulcerative
     Route: 065

REACTIONS (3)
  - Fungal oesophagitis [Unknown]
  - Drug interaction [Unknown]
  - Off label use [Unknown]
